FAERS Safety Report 6690797-2 (Version None)
Quarter: 2010Q2

REPORT INFORMATION
  Report Type: 
  Country: None (occurrence: None)
  Receive Date: 20100421
  Receipt Date: 20100413
  Transmission Date: 20101027
  Serious: Yes (Other)
  Sender: FDA-Public Use
  Company Number: US-JNJFOC-20100403536

PATIENT
  Age: 26 Year
  Sex: Male
  Weight: 81.65 kg

DRUGS (2)
  1. INVEGA [Suspect]
     Indication: DELUSION
     Route: 048
  2. ALL OTHER MEDICATIONS [Concomitant]
     Indication: DRUG USE FOR UNKNOWN INDICATION

REACTIONS (2)
  - DELUSION [None]
  - WEIGHT DECREASED [None]
